FAERS Safety Report 8857514 (Version 2)
Quarter: 2013Q1

REPORT INFORMATION
  Report Type: Spontaneous
  Country: US (occurrence: US)
  Receive Date: 20121024
  Receipt Date: 20130116
  Transmission Date: 20140127
  Serious: Yes (Hospitalization)
  Sender: FDA-Public Use
  Company Number: US-GLAXOSMITHKLINE-A0892157A

PATIENT
  Age: 44 Year
  Sex: Male

DRUGS (4)
  1. AVANDIA [Suspect]
     Indication: DIABETES MELLITUS
     Dosage: 8MG PER DAY
     Route: 048
     Dates: start: 20011017, end: 20061103
  2. GLUCOPHAGE [Concomitant]
  3. LIPITOR [Concomitant]
  4. SINGULAIR [Concomitant]

REACTIONS (10)
  - Myocardial infarction [Not Recovered/Not Resolved]
  - Cardiac arrest [Unknown]
  - Cerebrovascular accident [Unknown]
  - Hepatic failure [Unknown]
  - Liver injury [Unknown]
  - Chest pain [Unknown]
  - Asthenia [Unknown]
  - Pain in extremity [Unknown]
  - Asthenia [Unknown]
  - Fluid retention [Unknown]
